FAERS Safety Report 19731271 (Version 1)
Quarter: 2021Q3

REPORT INFORMATION
  Report Type: Spontaneous
  Country: FR (occurrence: FR)
  Receive Date: 20210821
  Receipt Date: 20210821
  Transmission Date: 20211014
  Serious: Yes (Hospitalization)
  Sender: FDA-Public Use
  Company Number: NVSC2021FR186197

PATIENT
  Age: 74 Year
  Sex: Female
  Weight: 64 kg

DRUGS (1)
  1. ACLASTA [Suspect]
     Active Substance: ZOLEDRONIC ACID
     Indication: OSTEOPOROTIC FRACTURE
     Dosage: UNK, NR
     Route: 041
     Dates: start: 20210320

REACTIONS (4)
  - Night sweats [Recovered/Resolved]
  - Inflammation [Recovered/Resolved]
  - Asthenia [Recovered/Resolved]
  - Relapsing fever [Recovered/Resolved]

NARRATIVE: CASE EVENT DATE: 20210322
